FAERS Safety Report 13822149 (Version 1)
Quarter: 2017Q3

REPORT INFORMATION
  Report Type: Spontaneous
  Country: US (occurrence: US)
  Receive Date: 20170801
  Receipt Date: 20170801
  Transmission Date: 20171127
  Serious: Yes (Disabling, Other)
  Sender: FDA-Public Use
  Company Number: None

PATIENT
  Age: 83 Year
  Sex: Female
  Weight: 65.77 kg

DRUGS (9)
  1. AMLODIPINE [Concomitant]
     Active Substance: AMLODIPINE BESYLATE
  2. VYTORIN [Concomitant]
     Active Substance: EZETIMIBE\SIMVASTATIN
  3. MAGNESIUM [Concomitant]
     Active Substance: MAGNESIUM
  4. PROLIA [Suspect]
     Active Substance: DENOSUMAB
  5. CALCIUM [Concomitant]
     Active Substance: CALCIUM
  6. L-THYROXINE [Concomitant]
     Active Substance: LEVOTHYROXINE
  7. POTASSIUM CHLORIDE ER [Concomitant]
     Active Substance: POTASSIUM CHLORIDE
  8. ASPIRIN. [Concomitant]
     Active Substance: ASPIRIN
  9. VITAMIN D2 [Concomitant]
     Active Substance: ERGOCALCIFEROL

REACTIONS (15)
  - Cough [None]
  - Adverse drug reaction [None]
  - Constipation [None]
  - Vomiting [None]
  - Pain in extremity [None]
  - Back pain [None]
  - Therapy non-responder [None]
  - Inflammation [None]
  - Headache [None]
  - Peripheral swelling [None]
  - Nausea [None]
  - Stress fracture [None]
  - Urinary tract infection [None]
  - Abdominal discomfort [None]
  - Arthropod bite [None]

NARRATIVE: CASE EVENT DATE: 20170515
